FAERS Safety Report 9229225 (Version 1)
Quarter: 2013Q2

REPORT INFORMATION
  Report Type: Spontaneous
  Country: US (occurrence: US)
  Receive Date: 20130412
  Receipt Date: 20130412
  Transmission Date: 20140414
  Serious: Yes (Hospitalization)
  Sender: FDA-Public Use
  Company Number: US-ASTELLAS-2013US002022

PATIENT
  Age: 45 Year
  Sex: Male
  Weight: 87 kg

DRUGS (11)
  1. PROGRAF [Suspect]
     Indication: IMMUNOSUPPRESSION
     Dosage: 5 MG, BID
     Route: 048
     Dates: start: 20091111, end: 20110502
  2. PROGRAF [Suspect]
     Dosage: 3 MG AM, 4 MG PM
     Route: 048
     Dates: start: 20110502
  3. UNSPECIFIED STUDY DRUG [Suspect]
     Indication: IMMUNOSUPPRESSION
     Dosage: 5 MG, BID
     Route: 048
     Dates: start: 20091111, end: 20110502
  4. PROVENTIL                          /00139501/ [Concomitant]
     Indication: PRODUCT USED FOR UNKNOWN INDICATION
     Dosage: UNK
     Route: 065
     Dates: start: 20081120
  5. ACETYLSALICYLIC ACID [Concomitant]
     Indication: PRODUCT USED FOR UNKNOWN INDICATION
     Dosage: UNK
     Route: 065
     Dates: start: 20110502
  6. OS-CAL D [Concomitant]
     Indication: PRODUCT USED FOR UNKNOWN INDICATION
     Dosage: UNK
     Route: 065
     Dates: start: 20081124
  7. DILAUDID [Concomitant]
     Dosage: UNK
     Route: 065
     Dates: start: 20110502
  8. MULTI-VIT [Concomitant]
     Indication: PRODUCT USED FOR UNKNOWN INDICATION
     Dosage: UNK
     Route: 065
     Dates: start: 20090121
  9. OMEGA-3 TRIGLYCERIDES [Concomitant]
     Indication: PRODUCT USED FOR UNKNOWN INDICATION
     Dosage: UNK
     Route: 065
     Dates: start: 20081120
  10. VIT D [Concomitant]
     Indication: PRODUCT USED FOR UNKNOWN INDICATION
     Dosage: UNK
     Route: 065
     Dates: start: 20110502
  11. CELLCEPT                           /01275102/ [Concomitant]
     Indication: PRODUCT USED FOR UNKNOWN INDICATION
     Dosage: UNK
     Route: 065
     Dates: start: 20091111

REACTIONS (1)
  - Pneumonia [Recovered/Resolved]
